FAERS Safety Report 19933104 (Version 1)
Quarter: 2021Q4

REPORT INFORMATION
  Report Type: Report from Study
  Country: AU (occurrence: AU)
  Receive Date: 20211008
  Receipt Date: 20211008
  Transmission Date: 20220303
  Serious: Yes (Other)
  Sender: FDA-Public Use
  Company Number: AU-NOVARTISPH-NVSC2021AU229944

PATIENT
  Age: 69 Year
  Sex: Male

DRUGS (1)
  1. COSENTYX [Suspect]
     Active Substance: SECUKINUMAB
     Indication: Psoriasis
     Dosage: 300 MG, QMO
     Route: 058
     Dates: start: 20200526

REACTIONS (2)
  - Prostate cancer [Unknown]
  - Product availability issue [Unknown]

NARRATIVE: CASE EVENT DATE: 20210901
